FAERS Safety Report 11286413 (Version 1)
Quarter: 2015Q3

REPORT INFORMATION
  Report Type: Spontaneous
  Country: US (occurrence: US)
  Receive Date: 20150721
  Receipt Date: 20150721
  Transmission Date: 20151125
  Serious: No
  Sender: FDA-Public Use
  Company Number: US-UNITED THERAPEUTICS-UNT-2015-002435

PATIENT
  Sex: Male
  Weight: 63.49 kg

DRUGS (1)
  1. TYVASO [Suspect]
     Active Substance: TREPROSTINIL
     Indication: PULMONARY HYPERTENSION
     Dosage: 18-54 MICROGRAMS, QID
     Dates: start: 20131205

REACTIONS (4)
  - Dysarthria [Unknown]
  - Device issue [Unknown]
  - Therapy cessation [Unknown]
  - Dyspnoea [Unknown]
